FAERS Safety Report 4422057-4 (Version None)
Quarter: 2004Q3

REPORT INFORMATION
  Report Type: 
  Country: None (occurrence: None)
  Receive Date: 20040809
  Receipt Date: 20040809
  Transmission Date: 20050211
  Serious: Yes (Other)
  Sender: FDA-Public Use
  Company Number: None

PATIENT
  Sex: Female
  Weight: 86.1834 kg

DRUGS (7)
  1. ZOLOFT [Suspect]
     Indication: MAJOR DEPRESSION
     Dosage: 200 MG DAILY ORAL
     Route: 048
     Dates: start: 19990305, end: 20040807
  2. METHADONE HCL [Concomitant]
  3. XANAX [Concomitant]
  4. NEXIUM [Concomitant]
  5. ZELNORM [Concomitant]
  6. FIORINAL [Concomitant]
  7. FIORICET [Concomitant]

REACTIONS (5)
  - ANGER [None]
  - MIGRAINE [None]
  - MYOCLONUS [None]
  - SUICIDAL IDEATION [None]
  - TREMOR [None]
